FAERS Safety Report 5251990-9 (Version None)
Quarter: 2007Q1

REPORT INFORMATION
  Report Type: 
  Country: None (occurrence: None)
  Receive Date: 20070226
  Receipt Date: 20060911
  Transmission Date: 20070707
  Serious: Yes (Other)
  Sender: FDA-Public Use
  Company Number: DSA_29401_2007

PATIENT
  Age: 63 Year
  Sex: Female

DRUGS (11)
  1. CARDIZEM [Suspect]
     Indication: ARRHYTHMIA
     Dosage: 180 MG BID PO
     Route: 048
  2. CARDIZEM [Suspect]
     Indication: ARRHYTHMIA
     Dosage: 180 MG Q DAY PO
     Route: 048
     Dates: start: 20030801
  3. CARDIZEM [Suspect]
     Indication: ARRHYTHMIA
     Dosage: 240 MG Q DAY PO
     Route: 048
  4. SIMVASTATIN [Suspect]
     Indication: HYPERCHOLESTEROLAEMIA
     Dosage: DF
     Dates: start: 20030814, end: 20041213
  5. TRIATEC [Concomitant]
  6. LOSEC [Concomitant]
  7. LYRICA [Concomitant]
  8. SYMBICORT [Concomitant]
  9. AIROMIR [Concomitant]
  10. VALLERGAN [Concomitant]
  11. ZYRTEC [Concomitant]

REACTIONS (7)
  - BALANCE DISORDER [None]
  - CONVULSION [None]
  - DRY MOUTH [None]
  - FATIGUE [None]
  - MUSCLE TWITCHING [None]
  - NAUSEA [None]
  - TINNITUS [None]
